FAERS Safety Report 18468570 (Version 4)
Quarter: 2020Q4

REPORT INFORMATION
  Report Type: Spontaneous
  Country: US (occurrence: US)
  Receive Date: 20201105
  Receipt Date: 20201120
  Transmission Date: 20210114
  Serious: Yes (Death, Hospitalization)
  Sender: FDA-Public Use
  Company Number: US-SEATTLE GENETICS-2020SGN04851

PATIENT
  Age: 70 Year
  Sex: Male

DRUGS (13)
  1. ZOFRAN [Concomitant]
     Active Substance: ONDANSETRON HYDROCHLORIDE
     Indication: VOMITING
  2. DIPROLENE [Concomitant]
     Active Substance: BETAMETHASONE DIPROPIONATE
     Indication: CUTANEOUS T-CELL LYMPHOMA
     Dosage: 1 DF, BID
     Route: 061
     Dates: start: 20200622
  3. TRICOR [Concomitant]
     Active Substance: FENOFIBRATE
     Indication: HYPERLIPIDAEMIA
     Dosage: 145 MG, QD
     Route: 048
     Dates: start: 20200706
  4. NIZORAL [Concomitant]
     Active Substance: KETOCONAZOLE
     Dosage: UNK UNK, BID
     Dates: start: 20200211
  5. ZOFRAN [Concomitant]
     Active Substance: ONDANSETRON HYDROCHLORIDE
     Indication: NAUSEA
     Dosage: 8 MG, PRN
     Route: 048
     Dates: start: 20201016
  6. ZOLOFT [Concomitant]
     Active Substance: SERTRALINE HYDROCHLORIDE
     Indication: DEPRESSION
     Dosage: 100 MG, QD
     Route: 048
  7. ACYCLOVIR                          /00587301/ [Concomitant]
     Active Substance: ACYCLOVIR
     Indication: PROPHYLAXIS
     Dosage: 400 MG, BID
     Route: 048
     Dates: start: 20201013
  8. PENLAC [Concomitant]
     Active Substance: CICLOPIROX
     Dosage: 1 DF, QHS
     Route: 061
     Dates: start: 20200519
  9. ADCETRIS [Suspect]
     Active Substance: BRENTUXIMAB VEDOTIN
     Indication: CUTANEOUS T-CELL LYMPHOMA
     Dosage: 1.8 MG/KG, Q3WEEKS
     Route: 042
     Dates: start: 20201005, end: 20201005
  10. ACLOVATE [Concomitant]
     Active Substance: ALCLOMETASONE DIPROPIONATE
     Indication: CUTANEOUS T-CELL LYMPHOMA
     Dosage: 1 DF, BID
     Route: 061
  11. SYNTHROID [Concomitant]
     Active Substance: LEVOTHYROXINE SODIUM
     Dosage: 125 ?G, QAM
     Route: 048
     Dates: start: 20200923
  12. LIPITOR [Concomitant]
     Active Substance: ATORVASTATIN CALCIUM
     Indication: HYPERLIPIDAEMIA
     Dosage: 40 MG, QD
     Route: 048
     Dates: start: 20200109
  13. BEXAROTENE. [Concomitant]
     Active Substance: BEXAROTENE
     Indication: CUTANEOUS T-CELL LYMPHOMA

REACTIONS (14)
  - Abdominal discomfort [Unknown]
  - Septic shock [Unknown]
  - Pneumonia aspiration [Unknown]
  - Gastritis [Unknown]
  - Multiple organ dysfunction syndrome [Fatal]
  - Lethargy [Unknown]
  - Asthenia [Unknown]
  - Liver function test increased [Unknown]
  - Headache [Unknown]
  - Acute respiratory failure [Fatal]
  - Diarrhoea [Fatal]
  - Vomiting [Recovered/Resolved]
  - Lactic acidosis [Unknown]
  - Diarrhoea haemorrhagic [Unknown]

NARRATIVE: CASE EVENT DATE: 202010
